FAERS Safety Report 25499621 (Version 1)
Quarter: 2025Q3

REPORT INFORMATION
  Report Type: Spontaneous
  Country: EU (occurrence: EU)
  Receive Date: 20250701
  Receipt Date: 20250701
  Transmission Date: 20251021
  Serious: Yes (Hospitalization, Other)
  Sender: FERRING
  Company Number: EU-FERRINGPH-2005-00357FE

PATIENT
  Age: 16 Year
  Sex: Male

DRUGS (3)
  1. DESMOPRESSIN [Suspect]
     Active Substance: DESMOPRESSIN
     Indication: Enuresis
     Dosage: 40 UG- DOUBLED THE DOSE
     Route: 045
  2. DESMOPRESSIN [Suspect]
     Active Substance: DESMOPRESSIN
     Dosage: 20 UG, DAILY
     Route: 045
  3. PROPIVERINE [Concomitant]
     Active Substance: PROPIVERINE
     Indication: Enuresis
     Route: 065

REACTIONS (4)
  - Hyponatraemic encephalopathy [Recovered/Resolved]
  - Epilepsy [Recovered/Resolved]
  - Hyponatraemia [Recovered/Resolved]
  - Intentional overdose [Recovered/Resolved]
